FAERS Safety Report 20054544 (Version 1)
Quarter: 2021Q4

REPORT INFORMATION
  Report Type: Spontaneous
  Country: US (occurrence: None)
  Receive Date: 20211110
  Receipt Date: 20211110
  Transmission Date: 20220303
  Serious: Yes (Life-Threatening, Hospitalization, Disabling)
  Sender: FDA-Public Use
  Company Number: None

PATIENT
  Age: 63 Year
  Sex: Female
  Weight: 90 kg

DRUGS (15)
  1. XELJANZ XR [Suspect]
     Active Substance: TOFACITINIB CITRATE
     Indication: Rheumatoid arthritis
     Dosage: FREQUENCY : DAILY;?
     Route: 048
     Dates: start: 20210703, end: 20211001
  2. Percocet 10/325 QID [Concomitant]
  3. FOSAMAX [Concomitant]
     Active Substance: ALENDRONATE SODIUM
  4. Austedo 6 mg once daily [Concomitant]
  5. doxycycline 100 mg capsules daily [Concomitant]
  6. gabapentin 400 mg TID [Concomitant]
  7. hydrochlorothiazide 12.5 mg daily [Concomitant]
  8. vascepta 2 grams BID [Concomitant]
  9. lactulose 15 mg daily PRN constipation [Concomitant]
  10. lamictal 50 mg twice daily [Concomitant]
  11. levothyroxine 75 mcg daily [Concomitant]
  12. methotrexate 25 mg subQ weekly [Concomitant]
  13. seroquel 200 mg QHS [Concomitant]
  14. tizanidine 4 mg every 6 hours PRN [Concomitant]
  15. Effexor XR 75 mg daily [Concomitant]

REACTIONS (1)
  - Pulmonary embolism [None]

NARRATIVE: CASE EVENT DATE: 20211008
